FAERS Safety Report 5536712-6 (Version None)
Quarter: 2007Q4

REPORT INFORMATION
  Report Type: 
  Country: None (occurrence: None)
  Receive Date: 20071206
  Receipt Date: 20070601
  Transmission Date: 20080405
  Serious: Yes (Other)
  Sender: FDA-Public Use
  Company Number: US-AMGEN-US227602

PATIENT
  Sex: Female

DRUGS (2)
  1. ENBREL [Suspect]
     Indication: RHEUMATOID ARTHRITIS
     Route: 058
     Dates: start: 20011201
  2. METHOTREXATE [Concomitant]
     Route: 048
     Dates: start: 19900101

REACTIONS (4)
  - ABDOMINAL PAIN [None]
  - NAUSEA [None]
  - NON-HODGKIN'S LYMPHOMA [None]
  - RHEUMATOID ARTHRITIS [None]
